FAERS Safety Report 17074335 (Version 1)
Quarter: 2019Q4

REPORT INFORMATION
  Report Type: Spontaneous
  Country: TR (occurrence: TR)
  Receive Date: 20191126
  Receipt Date: 20191126
  Transmission Date: 20200122
  Serious: Yes (Hospitalization)
  Sender: FDA-Public Use
  Company Number: TR-ALLERGAN-1948285US

PATIENT
  Sex: Female

DRUGS (1)
  1. DARIFENACIN UNK [Suspect]
     Active Substance: DARIFENACIN
     Indication: URINARY INCONTINENCE
     Dosage: 1 DF, QD

REACTIONS (1)
  - Oesophagitis [Recovered/Resolved]
